FAERS Safety Report 6319807-9 (Version None)
Quarter: 2009Q3

REPORT INFORMATION
  Report Type: 
  Country: None (occurrence: None)
  Receive Date: 20090822
  Receipt Date: 20081001
  Transmission Date: 20100115
  Serious: No
  Sender: FDA-Public Use
  Company Number: US-ABBOTT-08P-163-0478565-00

PATIENT
  Sex: Male
  Weight: 102.15 kg

DRUGS (6)
  1. NIASPAN [Suspect]
     Indication: BLOOD CHOLESTEROL INCREASED
     Route: 048
     Dates: start: 20080501, end: 20080915
  2. NIASPAN [Suspect]
     Route: 048
     Dates: start: 20080915
  3. ZOLPIDEM TARTRATE [Concomitant]
     Indication: SLEEP DISORDER THERAPY
     Route: 048
  4. ESCITALOPRAM OXALATE [Concomitant]
     Indication: DEPRESSION
     Route: 048
  5. TYLOX [Concomitant]
     Indication: PAIN
     Route: 048
  6. DIAZEPAM [Concomitant]
     Indication: MUSCLE SPASMS
     Route: 048

REACTIONS (3)
  - ABASIA [None]
  - FLUSHING [None]
  - PARAESTHESIA [None]
